FAERS Safety Report 10685315 (Version 1)
Quarter: 2014Q4

REPORT INFORMATION
  Report Type: Spontaneous
  Country: JP (occurrence: JP)
  Receive Date: 20141231
  Receipt Date: 20141231
  Transmission Date: 20150529
  Serious: Yes (Other)
  Sender: FDA-Public Use
  Company Number: JP-JNJFOC-20141216115

PATIENT

DRUGS (2)
  1. FENTANYL CITRATE. [Suspect]
     Active Substance: FENTANYL CITRATE
     Indication: CANCER PAIN
     Route: 042
  2. DUROTEP MT [Suspect]
     Active Substance: FENTANYL
     Indication: CANCER PAIN
     Route: 062

REACTIONS (8)
  - Skin disorder [Unknown]
  - Respiratory depression [Unknown]
  - Delirium [Unknown]
  - Somnolence [Unknown]
  - Vomiting [Unknown]
  - Hepatic function abnormal [Unknown]
  - Nausea [Unknown]
  - Constipation [Unknown]
